FAERS Safety Report 24567964 (Version 3)
Quarter: 2024Q4

REPORT INFORMATION
  Report Type: Spontaneous
  Country: US (occurrence: US)
  Receive Date: 20241031
  Receipt Date: 20241129
  Transmission Date: 20250115
  Serious: Yes (Other)
  Sender: STALLERGENES
  Company Number: US-STALCOR-2024-AER-02432

PATIENT
  Sex: Female

DRUGS (3)
  1. PALFORZIA [Suspect]
     Active Substance: PEANUT
     Indication: Food allergy
     Dosage: 300MG: REACTIVE DOSE DISPENSED ON 27-SEP-2024.  BATCH/LOT NUMBER 2301017, EXPIRATION DATE 31-JAN-202
     Route: 048
  2. PALFORZIA [Suspect]
     Active Substance: PEANUT
     Dosage: 300MG: MAINTENANCE DOSE DISPENSED ON 17-JUL-2021. [BATCH NUMBER: 21035, EXPIRATION DATE: 01-NOV-2023
     Route: 048
  3. PROZAC [Concomitant]
     Active Substance: FLUOXETINE HYDROCHLORIDE
     Indication: Product used for unknown indication

REACTIONS (1)
  - Polycystic ovarian syndrome [Not Recovered/Not Resolved]
